FAERS Safety Report 5600422-7 (Version None)
Quarter: 2008Q1

REPORT INFORMATION
  Report Type: 
  Country: None (occurrence: None)
  Receive Date: 20080123
  Receipt Date: 20080115
  Transmission Date: 20080703
  Serious: Yes (Hospitalization)
  Sender: FDA-Public Use
  Company Number: PHHO2007SE16115

PATIENT
  Age: 69 Year
  Sex: Male
  Weight: 102 kg

DRUGS (1)
  1. CERTICAN [Suspect]
     Indication: RENAL TRANSPLANT
     Dosage: 720 MG, BID
     Route: 048
     Dates: start: 20070824, end: 20071024

REACTIONS (16)
  - ABDOMINAL PAIN [None]
  - BLOOD CREATININE INCREASED [None]
  - BLOOD UREA INCREASED [None]
  - EXPLORATIVE LAPAROTOMY [None]
  - HYPOTENSION [None]
  - ILEECTOMY [None]
  - KIDNEY TRANSPLANT REJECTION [None]
  - MECHANICAL ILEUS [None]
  - NAUSEA [None]
  - OEDEMA [None]
  - OVERWEIGHT [None]
  - PYREXIA [None]
  - SEPSIS [None]
  - SUTURE INSERTION [None]
  - TACHYCARDIA [None]
  - VOMITING [None]
